FAERS Safety Report 9803351 (Version 1)
Quarter: 2014Q1

REPORT INFORMATION
  Report Type: Spontaneous
  Country: US (occurrence: None)
  Receive Date: 20140107
  Receipt Date: 20140107
  Transmission Date: 20141002
  Serious: Yes (Other)
  Sender: FDA-Public Use
  Company Number: None

PATIENT
  Age: 30 Year
  Sex: Female

DRUGS (5)
  1. FENTANYL PATCH [Suspect]
  2. CYMBALTA [Concomitant]
  3. SYMBICORT [Concomitant]
  4. LEVOTHROID [Concomitant]
  5. FLEXERIL OXYCODONE ZANTAC DOXYCYCLINE1-3-14 [Concomitant]

REACTIONS (2)
  - Pruritus [None]
  - Rubber sensitivity [None]
